FAERS Safety Report 7196479-5 (Version None)
Quarter: 2010Q4

REPORT INFORMATION
  Report Type: 
  Country: None (occurrence: None)
  Receive Date: 20101223
  Receipt Date: 20101025
  Transmission Date: 20110411
  Serious: No
  Sender: FDA-Public Use
  Company Number: US-AMGEN-USASP2010002413

PATIENT

DRUGS (2)
  1. ENBREL [Suspect]
     Indication: ANKYLOSING SPONDYLITIS
     Dates: start: 20050301
  2. ENBREL [Suspect]
     Dates: start: 20050301

REACTIONS (3)
  - HEADACHE [None]
  - MALAISE [None]
  - MIGRAINE [None]
